FAERS Safety Report 20918484 (Version 1)
Quarter: 2022Q2

REPORT INFORMATION
  Report Type: Spontaneous
  Country: US (occurrence: None)
  Receive Date: 20220603
  Receipt Date: 20220603
  Transmission Date: 20220721
  Serious: Yes (Other)
  Sender: FDA-Public Use
  Company Number: None

PATIENT
  Age: 28 Year
  Sex: Male

DRUGS (5)
  1. PAXLOVID [Suspect]
     Active Substance: NIRMATRELVIR\RITONAVIR
     Indication: COVID-19
     Dates: start: 20220523, end: 20220528
  2. ADDERALL [Concomitant]
     Active Substance: AMPHETAMINE ASPARTATE\AMPHETAMINE SULFATE\DEXTROAMPHETAMINE SACCHARATE\DEXTROAMPHETAMINE SULFATE
  3. BENZONATATE [Concomitant]
     Active Substance: BENZONATATE
  4. FINASTERIDE [Concomitant]
     Active Substance: FINASTERIDE
  5. MINOXIDIL [Concomitant]
     Active Substance: MINOXIDIL

REACTIONS (2)
  - COVID-19 [None]
  - Rebound effect [None]

NARRATIVE: CASE EVENT DATE: 20220601
